FAERS Safety Report 8760909 (Version 1)
Quarter: 2012Q4

REPORT INFORMATION
  Report Type: 
  Country: US (occurrence: US)
  Receive Date: 20120830
  Receipt Date: 20120830
  Transmission Date: 20130627
  Serious: No
  Sender: FDA-Public Use
  Company Number: US-SANOFI-AVENTIS-2012SA061031

PATIENT
  Age: 71 Year
  Sex: Female

DRUGS (2)
  1. MULTAQ [Suspect]
     Indication: ATRIAL FIBRILLATION
     Route: 048
     Dates: start: 201204
  2. DABIGATRAN ETEXILATE [Suspect]
     Route: 065
     Dates: start: 201204

REACTIONS (1)
  - Blood creatinine increased [Unknown]
